FAERS Safety Report 5765458-4 (Version None)
Quarter: 2008Q2

REPORT INFORMATION
  Report Type: 
  Country: None (occurrence: None)
  Receive Date: 20080611
  Receipt Date: 20080605
  Transmission Date: 20081010
  Serious: Yes (Life-Threatening, Hospitalization, Disabling, Other)
  Sender: FDA-Public Use
  Company Number: A0731477A

PATIENT
  Sex: Female

DRUGS (3)
  1. IMITREX [Suspect]
     Indication: MIGRAINE
     Dosage: 50MG PER DAY
     Route: 048
     Dates: start: 19980101
  2. IMITREX [Suspect]
     Route: 058
  3. UNKNOWN [Concomitant]

REACTIONS (4)
  - DYSPHONIA [None]
  - MIGRAINE [None]
  - PULMONARY THROMBOSIS [None]
  - VOCAL CORD DISORDER [None]
